FAERS Safety Report 7593578-0 (Version None)
Quarter: 2011Q3

REPORT INFORMATION
  Report Type: 
  Country: None (occurrence: None)
  Receive Date: 20110706
  Receipt Date: 20110628
  Transmission Date: 20111222
  Serious: Yes (Hospitalization, Other)
  Sender: FDA-Public Use
  Company Number: GB-B.I. PHARMACEUTICALS,INC./RIDGEFIELD-2011-UK-00678UK

PATIENT
  Age: 29 Year
  Sex: Female

DRUGS (11)
  1. NEVIRAPINE [Suspect]
  2. COTRIM [Suspect]
  3. DEXAMETHASONE [Concomitant]
     Dosage: 1%
     Route: 061
  4. ACYCLOVIR [Suspect]
     Dosage: 400 MG
     Route: 048
  5. ACYCLOVIR [Suspect]
     Dosage: 800 MG
  6. AMOXICILLIN [Suspect]
     Indication: LOWER RESPIRATORY TRACT INFECTION
  7. FAMCICLOVIR [Suspect]
     Route: 048
  8. COMBIVIR [Suspect]
  9. FLUCONAZOLE [Suspect]
  10. PREDNISOLONE [Concomitant]
     Dosage: 40 MG
     Route: 048
  11. ACYCLOVIR [Suspect]
     Indication: NECROTISING RETINITIS
     Dosage: 10MG/KG
     Route: 042

REACTIONS (16)
  - CD4 LYMPHOCYTES DECREASED [None]
  - VISUAL ACUITY REDUCED [None]
  - RASH MACULO-PAPULAR [None]
  - ANGIOEDEMA [None]
  - VISION BLURRED [None]
  - SKIN DISORDER [None]
  - CHEST DISCOMFORT [None]
  - HAEMOGLOBIN DECREASED [None]
  - DRUG HYPERSENSITIVITY [None]
  - LOWER RESPIRATORY TRACT INFECTION [None]
  - RASH [None]
  - SWELLING [None]
  - CATARACT [None]
  - RETINITIS [None]
  - RASH ERYTHEMATOUS [None]
  - NECROTISING RETINITIS [None]
